FAERS Safety Report 8340622-9 (Version None)
Quarter: 2012Q2

REPORT INFORMATION
  Report Type: 
  Country: None (occurrence: None)
  Receive Date: 20120507
  Receipt Date: 20090924
  Transmission Date: 20120825
  Serious: Yes (Other)
  Sender: FDA-Public Use
  Company Number: US-TEVA-2009010651

PATIENT
  Sex: Female
  Weight: 90.8 kg

DRUGS (11)
  1. PROZAC [Concomitant]
     Route: 048
  2. TREANDA [Suspect]
     Route: 042
     Dates: start: 20090903
  3. TREANDA [Suspect]
     Indication: MANTLE CELL LYMPHOMA
     Route: 042
     Dates: start: 20090803, end: 20090804
  4. BACLOFEN [Concomitant]
     Route: 048
  5. INSULIN [Concomitant]
     Route: 048
  6. CARAFATE [Concomitant]
     Route: 048
  7. PHENERGAN [Concomitant]
     Route: 048
  8. PERCOCET [Concomitant]
     Route: 048
  9. FOLIC ACID [Concomitant]
     Route: 048
  10. METHADONE HCL [Concomitant]
     Route: 048
  11. LASIX [Concomitant]
     Route: 048

REACTIONS (2)
  - ABDOMINAL DISCOMFORT [None]
  - PLATELET COUNT DECREASED [None]
